FAERS Safety Report 15730905 (Version 1)
Quarter: 2018Q4

REPORT INFORMATION
  Report Type: Spontaneous
  Country: ZA (occurrence: ZA)
  Receive Date: 20181217
  Receipt Date: 20181217
  Transmission Date: 20190205
  Serious: Yes (Hospitalization)
  Sender: FDA-Public Use
  Company Number: ZA-PFIZER INC-2018463153

PATIENT
  Age: 70 Year
  Sex: Female

DRUGS (8)
  1. ASPEN WARFARIN [Suspect]
     Active Substance: WARFARIN
     Dosage: 5 MG, UNK
  2. ASPAVOR [Suspect]
     Active Substance: ATORVASTATIN
     Dosage: 40 MG, UNK
  3. EPILIZINE CR [Suspect]
     Active Substance: VALPROATE SODIUM
     Dosage: 700 MG, UNK
  4. OPTIVE PLUS (CARBOXYMETHYLCELLULOSE SODIUM\GLYCERIN\POLYSORBATE 80) [Suspect]
     Active Substance: CARBOXYMETHYLCELLULOSE SODIUM\GLYCERIN\POLYSORBATE 80
  5. PREXUM [Suspect]
     Active Substance: PERINDOPRIL ERBUMINE
     Dosage: 10 MG, UNK
  6. INDAPAMIDE MYLAN [Suspect]
     Active Substance: INDAPAMIDE
     Dosage: 2.5 MG, UNK
  7. EPILIZINE CR [Suspect]
     Active Substance: VALPROATE SODIUM
     Dosage: 500 MG, UNK
  8. BIOPREXUM PLUS [Suspect]
     Active Substance: INDAPAMIDE\PERINDOPRIL ARGININE
     Dosage: 10/2.5MG

REACTIONS (1)
  - Cerebrovascular accident [Not Recovered/Not Resolved]

NARRATIVE: CASE EVENT DATE: 201810
